FAERS Safety Report 8200508-7 (Version None)
Quarter: 2012Q1

REPORT INFORMATION
  Report Type: 
  Country: None (occurrence: None)
  Receive Date: 20120306
  Receipt Date: 20120227
  Transmission Date: 20120608
  Serious: Yes (Other)
  Sender: FDA-Public Use
  Company Number: 2012MA002642

PATIENT

DRUGS (2)
  1. WARFARIN SODIUM [Suspect]
  2. FEVERALL [Suspect]

REACTIONS (8)
  - DEHYDRATION [None]
  - ALANINE AMINOTRANSFERASE INCREASED [None]
  - DRUG INTERACTION [None]
  - INTERNATIONAL NORMALISED RATIO INCREASED [None]
  - HAEMORRHAGE [None]
  - MALNUTRITION [None]
  - PYREXIA [None]
  - DIARRHOEA [None]
